FAERS Safety Report 10128655 (Version 1)
Quarter: 2014Q2

REPORT INFORMATION
  Report Type: Spontaneous
  Country: TW (occurrence: TW)
  Receive Date: 20140428
  Receipt Date: 20140428
  Transmission Date: 20141212
  Serious: Yes (Death)
  Sender: FDA-Public Use
  Company Number: TW-ASTRAZENECA-2014SE28471

PATIENT
  Age: 78 Year
  Sex: Female

DRUGS (7)
  1. BRILINTA [Suspect]
     Route: 048
  2. BRILINTA [Suspect]
     Route: 048
  3. CO-DIOVAN [Concomitant]
     Dosage: VALSARTAN 160MG+HCTZ 12.5MG, 1 TABLET DAILY
     Route: 048
  4. ASPIRIN [Concomitant]
     Route: 048
  5. DILTIAZEM [Concomitant]
     Route: 048
  6. LIPITOR [Concomitant]
  7. HYDRALAZINE HCL [Concomitant]

REACTIONS (3)
  - Cerebral haemorrhage [Fatal]
  - Fall [Fatal]
  - Altered state of consciousness [Fatal]
